FAERS Safety Report 7311460-0 (Version None)
Quarter: 2011Q1

REPORT INFORMATION
  Report Type: 
  Country: None (occurrence: None)
  Receive Date: 20110224
  Receipt Date: 20101029
  Transmission Date: 20110831
  Serious: No
  Sender: FDA-Public Use
  Company Number: US-BAYER-201023290BCC

PATIENT
  Sex: Male
  Weight: 88.636 kg

DRUGS (5)
  1. ZOCOR [Concomitant]
  2. METOPROLOL [Concomitant]
  3. ALEVE [Suspect]
     Indication: BACK PAIN
     Dosage: UNK
     Route: 048
     Dates: start: 20101026, end: 20101027
  4. FINASTERIDE [Concomitant]
  5. FLOMAX [Concomitant]

REACTIONS (1)
  - CONSTIPATION [None]
